FAERS Safety Report 8347578-3 (Version None)
Quarter: 2012Q1

REPORT INFORMATION
  Report Type: 
  Country: None (occurrence: None)
  Receive Date: 20120315
  Receipt Date: 20110614
  Transmission Date: 20120608
  Serious: No
  Sender: FDA-Public Use
  Company Number: PHHY2011US53051

PATIENT
  Age: 46 Year
  Sex: Female

DRUGS (2)
  1. GILENYA [Suspect]
     Indication: MULTIPLE SCLEROSIS RELAPSE
     Dosage: 0.5 MG,DAILY, ORAL 0.5 MG, BID, ORAL
     Route: 048
     Dates: start: 20110614
  2. GILENYA [Suspect]
     Indication: MULTIPLE SCLEROSIS RELAPSE
     Dosage: 0.5 MG,DAILY, ORAL 0.5 MG, BID, ORAL
     Route: 048
     Dates: start: 20110511

REACTIONS (4)
  - HYPERHIDROSIS [None]
  - PANIC ATTACK [None]
  - OVERDOSE [None]
  - FEELING HOT [None]
